FAERS Safety Report 7989644 (Version 6)
Quarter: 2013Q3

REPORT INFORMATION
  Report Type: Report from Study
  Country: US (occurrence: US)
  Receive Date: 20110614
  Receipt Date: 20130719
  Transmission Date: 20140515
  Serious: Yes (Other)
  Sender: FDA-Public Use
  Company Number: US-BRISTOL-MYERS SQUIBB COMPANY-15811821

PATIENT
  Age: 56 Year
  Sex: Male

DRUGS (23)
  1. INSULIN GLARGINE [Suspect]
     Indication: DIABETES MELLITUS
     Dosage: 54IU ALSO TAKEN
  2. INSULIN ASPART [Suspect]
     Indication: DIABETES MELLITUS
  3. PLACEBO [Suspect]
     Indication: TYPE 2 DIABETES MELLITUS
     Dosage: LAST DOSE:22JAN2013
     Dates: start: 20100716
  4. BACTRIM DS [Concomitant]
     Indication: SINUSITIS
     Route: 048
  5. DOCUSATE [Concomitant]
     Indication: CONSTIPATION
     Route: 048
  6. ZOLPIDEM [Concomitant]
     Indication: INSOMNIA
     Route: 048
  7. DIAZEPAM [Concomitant]
     Indication: ANXIETY
     Route: 048
  8. LACTULOSE [Concomitant]
     Indication: CONSTIPATION
     Route: 048
  9. MAGNESIUM OXIDE [Concomitant]
     Route: 048
  10. TACROLIMUS [Concomitant]
     Indication: LIVER TRANSPLANT
     Route: 048
  11. FLUTICASONE [Concomitant]
     Indication: RHINITIS ALLERGIC
     Route: 045
  12. AUGMENTIN [Concomitant]
     Indication: SINUSITIS
     Route: 048
  13. CALCITRIOL [Concomitant]
     Indication: HYPERPARATHYROIDISM
     Route: 048
  14. ERGOCALCIFEROL [Concomitant]
     Indication: VITAMIN D DEFICIENCY
     Route: 048
  15. IBUPROFEN [Concomitant]
     Indication: HEADACHE
     Route: 048
  16. PSYLLIUM [Concomitant]
     Indication: CONSTIPATION
     Route: 048
  17. FAMOTIDINE [Concomitant]
     Indication: GASTROOESOPHAGEAL REFLUX DISEASE
     Route: 048
  18. CETIRIZINE [Concomitant]
     Indication: RHINITIS ALLERGIC
     Route: 048
  19. COLLAGENASE [Concomitant]
     Indication: DIABETIC FOOT
  20. AMMONIUM LACTATE [Concomitant]
     Indication: DRY SKIN
  21. ASPIRIN [Concomitant]
  22. NITRATES [Concomitant]
  23. NIACIN [Concomitant]

REACTIONS (1)
  - Herpes zoster infection neurological [Recovered/Resolved]
